FAERS Safety Report 5064925-9 (Version None)
Quarter: 2006Q3

REPORT INFORMATION
  Report Type: 
  Country: None (occurrence: None)
  Receive Date: 20060726
  Receipt Date: 20060710
  Transmission Date: 20061208
  Serious: Yes (Disabling)
  Sender: FDA-Public Use
  Company Number: C-06-0036

PATIENT
  Sex: Male

DRUGS (2)
  1. REGLAN [Suspect]
     Indication: CONSTIPATION
     Dates: start: 20040630, end: 20041201
  2. REGLAN [Suspect]
     Indication: ENCOPRESIS
     Dates: start: 20040630, end: 20041201

REACTIONS (2)
  - EXTRAPYRAMIDAL DISORDER [None]
  - NERVOUS SYSTEM DISORDER [None]
